FAERS Safety Report 11872220 (Version 2)
Quarter: 2016Q1

REPORT INFORMATION
  Report Type: Report from Study
  Country: FI (occurrence: FI)
  Receive Date: 20151228
  Receipt Date: 20160114
  Transmission Date: 20160526
  Serious: Yes (Hospitalization)
  Sender: FDA-Public Use
  Company Number: FI-ABBVIE-15P-055-1524875-00

PATIENT
  Age: 69 Year
  Sex: Female

DRUGS (1)
  1. DUODOPA [Suspect]
     Active Substance: CARBIDOPA\LEVODOPA
     Indication: PRODUCT USED FOR UNKNOWN INDICATION
     Dosage: 24 HOUR TREATMENT
     Route: 065
     Dates: start: 20151103

REACTIONS (3)
  - Delusional disorder, unspecified type [Unknown]
  - Device dislocation [Unknown]
  - Dyskinesia [Unknown]

NARRATIVE: CASE EVENT DATE: 2015
